FAERS Safety Report 6183693-0 (Version None)
Quarter: 2009Q2

REPORT INFORMATION
  Report Type: 
  Country: None (occurrence: None)
  Receive Date: 20090508
  Receipt Date: 20090429
  Transmission Date: 20091009
  Serious: Yes (Disabling, Other)
  Sender: FDA-Public Use
  Company Number: GB-TEVA-193279ISR

PATIENT
  Age: 58 Year
  Weight: 60 kg

DRUGS (3)
  1. AMITRIPTLINE HYDROCHLORIDE TAB [Suspect]
     Indication: MYALGIA
     Route: 048
     Dates: start: 20081204
  2. AMITRIPTLINE HYDROCHLORIDE TAB [Concomitant]
  3. NITROFURANTOIN [Suspect]
     Indication: URINARY TRACT INFECTION
     Route: 048
     Dates: start: 20090409, end: 20090411

REACTIONS (2)
  - INFLUENZA LIKE ILLNESS [None]
  - PALPITATIONS [None]
